FAERS Safety Report 5390773-6 (Version None)
Quarter: 2007Q3

REPORT INFORMATION
  Report Type: 
  Country: None (occurrence: None)
  Receive Date: 20070716
  Receipt Date: 20070706
  Transmission Date: 20080115
  Serious: Yes (Other)
  Sender: FDA-Public Use
  Company Number: 2007323260

PATIENT
  Age: 42 Year
  Sex: Female
  Weight: 53 kg

DRUGS (3)
  1. NICOTINE [Suspect]
     Dosage: UNSPECIFIED, TOPICAL
     Route: 061
  2. NICORETTE [Suspect]
     Indication: TOBACCO WITHDRAWAL SYMPTOMS
     Dosage: 20 TO 30 MG PER DAY IN 10 TO 15 INTAKES, ORAL
     Route: 048
     Dates: start: 20060101, end: 20070528
  3. BETADINE [Suspect]
     Indication: SURGERY
     Dosage: TOPICAL
     Route: 061
     Dates: start: 20060801

REACTIONS (2)
  - APPLICATION SITE DERMATITIS [None]
  - TOXIC SKIN ERUPTION [None]
